FAERS Safety Report 21638210 (Version 2)
Quarter: 2023Q2

REPORT INFORMATION
  Report Type: Spontaneous
  Country: US (occurrence: US)
  Receive Date: 20221124
  Receipt Date: 20230518
  Transmission Date: 20230722
  Serious: Yes (Hospitalization, Other)
  Sender: FDA-Public Use
  Company Number: US-SA-SAC20221123000955

PATIENT
  Age: 63 Year
  Sex: Female

DRUGS (24)
  1. TAXOTERE [Suspect]
     Active Substance: DOCETAXEL
     Indication: Non-small cell lung cancer metastatic
     Dosage: 167 MG, ON DAY 5 EVERY 21 DAYS
     Route: 042
     Dates: start: 20221007, end: 202210
  2. TAXOTERE [Suspect]
     Active Substance: DOCETAXEL
     Dosage: 121 MG
     Route: 042
     Dates: start: 20221028
  3. TAXOTERE [Suspect]
     Active Substance: DOCETAXEL
     Dosage: 55MG/M2 EVERY 21 DAYS
     Route: 042
     Dates: start: 20221028
  4. OBINUTUZUMAB [Concomitant]
     Active Substance: OBINUTUZUMAB
     Indication: Non-small cell lung cancer metastatic
     Dosage: 1000 MG
     Route: 042
     Dates: start: 20220920
  5. NAPTUMOMAB ESTAFENATOX [Concomitant]
     Active Substance: NAPTUMOMAB ESTAFENATOX
     Indication: Non-small cell lung cancer metastatic
     Dosage: 1034 UG, ON DAYS 1-4 EVERY 21 DAYS
     Route: 042
     Dates: start: 20221003
  6. NAPTUMOMAB ESTAFENATOX [Concomitant]
     Active Substance: NAPTUMOMAB ESTAFENATOX
     Dosage: 755 UNK
     Dates: start: 20221024
  7. NAPTUMOMAB ESTAFENATOX [Concomitant]
     Active Substance: NAPTUMOMAB ESTAFENATOX
     Dosage: 10 UG/KG, Q3W
     Route: 042
     Dates: start: 20221003
  8. NAPTUMOMAB ESTAFENATOX [Concomitant]
     Active Substance: NAPTUMOMAB ESTAFENATOX
     Dosage: 5 UG/KG
     Route: 042
     Dates: start: 20221227
  9. NAPTUMOMAB ESTAFENATOX [Concomitant]
     Active Substance: NAPTUMOMAB ESTAFENATOX
     Dosage: UNK
     Dates: start: 20230420
  10. NEURONTIN [Concomitant]
     Active Substance: GABAPENTIN
     Dosage: 800 MG, BID
     Route: 048
  11. DILAUDID [Concomitant]
     Active Substance: HYDROMORPHONE HYDROCHLORIDE
     Dosage: UNK
     Route: 042
  12. DILAUDID [Concomitant]
     Active Substance: HYDROMORPHONE HYDROCHLORIDE
     Dosage: 2 MG, Q6H, AS NEEDED
     Route: 048
  13. MS CONTIN [Concomitant]
     Active Substance: MORPHINE SULFATE
     Dosage: 15 MG, BID
     Route: 048
  14. ROXICODONE [Concomitant]
     Active Substance: OXYCODONE HYDROCHLORIDE
     Dosage: UNK
  15. WARFARIN [Concomitant]
     Active Substance: WARFARIN
     Dosage: UNK
  16. ZYRTEC [Concomitant]
     Active Substance: CETIRIZINE HYDROCHLORIDE
     Dosage: 10 MG, QD
  17. FLONASE [Concomitant]
     Active Substance: FLUTICASONE PROPIONATE
     Indication: Rhinitis
     Dosage: 1-2 SPRAYS, QD AS NEEDED
     Route: 045
  18. PROAIR HFA [Concomitant]
     Active Substance: ALBUTEROL SULFATE
     Indication: Dyspnoea
     Dosage: INHALER 2 PUFFS, Q6H AS NEEDED
  19. FOLIC ACID [Concomitant]
     Active Substance: FOLIC ACID
     Dosage: 1 MG, QD
     Route: 048
  20. LIDOCARE [Concomitant]
     Dosage: UNK, QD
     Route: 061
  21. PRILOSEC [Concomitant]
     Active Substance: OMEPRAZOLE MAGNESIUM
     Dosage: 20 MG, QD
     Route: 048
  22. CRESTOR [Concomitant]
     Active Substance: ROSUVASTATIN CALCIUM
     Dosage: 20 MG, QD
     Route: 048
  23. NEULASTA [Concomitant]
     Active Substance: PEGFILGRASTIM
     Dosage: 6 MG, Q3W ON DAY 5 AFTER CHEMOTHERAPY
     Route: 058
     Dates: start: 20221003
  24. DURAGESIC [Concomitant]
     Active Substance: FENTANYL
     Indication: Pain
     Dosage: 25 MCG/HR, Q3D

REACTIONS (19)
  - Non-small cell lung cancer [Not Recovered/Not Resolved]
  - Pleural thickening [Not Recovered/Not Resolved]
  - Lymphangiosis carcinomatosa [Unknown]
  - COVID-19 [Unknown]
  - Nephrolithiasis [Unknown]
  - Acute respiratory failure [Recovered/Resolved]
  - Pain [Recovered/Resolved]
  - Troponin increased [Unknown]
  - Multiple gated acquisition scan abnormal [Unknown]
  - Anaemia [Unknown]
  - Haemoglobin decreased [Unknown]
  - Chest pain [Unknown]
  - Abdominal pain [Unknown]
  - Sepsis [Unknown]
  - Cough [Unknown]
  - Pyrexia [Unknown]
  - Chills [Unknown]
  - Neutropenia [Unknown]
  - Pneumonia [Unknown]

NARRATIVE: CASE EVENT DATE: 20221012
